FAERS Safety Report 17443775 (Version 1)
Quarter: 2020Q1

REPORT INFORMATION
  Report Type: Spontaneous
  Country: US (occurrence: US)
  Receive Date: 20200221
  Receipt Date: 20200221
  Transmission Date: 20200409
  Serious: No
  Sender: FDA-Public Use
  Company Number: US-ASTRAZENECA-2020SE12107

PATIENT
  Age: 965 Month
  Sex: Male
  Weight: 90.7 kg

DRUGS (1)
  1. NEXIUM [Suspect]
     Active Substance: ESOMEPRAZOLE MAGNESIUM
     Indication: GASTROOESOPHAGEAL REFLUX DISEASE
     Route: 048
     Dates: start: 2008

REACTIONS (5)
  - Abdominal distension [Unknown]
  - Pain [Unknown]
  - Back pain [Unknown]
  - Flank pain [Unknown]
  - Eructation [Unknown]

NARRATIVE: CASE EVENT DATE: 201912
